FAERS Safety Report 10422268 (Version 2)
Quarter: 2014Q3

REPORT INFORMATION
  Report Type: Spontaneous
  Country: FI (occurrence: FI)
  Receive Date: 20140901
  Receipt Date: 20140905
  Transmission Date: 20150326
  Serious: Yes (Life-Threatening, Hospitalization)
  Sender: FDA-Public Use
  Company Number: FI-ELI_LILLY_AND_COMPANY-FI201408010089

PATIENT
  Age: 44 Year
  Sex: Male

DRUGS (5)
  1. RENITEC                                 /NET/ [Concomitant]
     Active Substance: ENALAPRIL MALEATE
     Dosage: UNK, UNKNOWN
     Route: 065
  2. BISOPROLOL                         /00802601/ [Concomitant]
     Active Substance: BISOPROLOL
     Dosage: 2.5 MG, QD
     Route: 065
  3. PERATSIN                           /00023401/ [Concomitant]
     Dosage: 16 MG, QD
     Route: 065
  4. BISOPROLOL                         /00802601/ [Concomitant]
     Active Substance: BISOPROLOL
     Dosage: 5 MG, QD
  5. ZYPADHERA [Suspect]
     Active Substance: OLANZAPINE PAMOATE
     Indication: SCHIZOPHRENIA
     Dosage: 405 MG, MONTHLY (1/M) (EVERY 2 WEEKS)
     Route: 030
     Dates: start: 20120802, end: 20140422

REACTIONS (18)
  - Blood pressure increased [Recovered/Resolved]
  - Loss of consciousness [Recovered/Resolved]
  - Pyrexia [Recovered/Resolved]
  - Hypokalaemia [Recovered/Resolved]
  - Hyperhidrosis [Recovered/Resolved]
  - Dysarthria [Recovered/Resolved]
  - Asthenia [Recovered/Resolved]
  - Hypokalaemia [Recovered/Resolved]
  - Dry mouth [Recovered/Resolved]
  - Prescribed overdose [Recovered/Resolved]
  - Incorrect route of drug administration [Unknown]
  - Acute sinusitis [Recovered/Resolved]
  - Somnolence [Recovered/Resolved]
  - Pallor [Recovered/Resolved]
  - Acute sinusitis [Recovered/Resolved]
  - Loss of consciousness [Recovered/Resolved]
  - Gait disturbance [Recovered/Resolved]
  - Somnolence [Recovered/Resolved]

NARRATIVE: CASE EVENT DATE: 20120802
